FAERS Safety Report 6778700-8 (Version None)
Quarter: 2010Q2

REPORT INFORMATION
  Report Type: 
  Country: None (occurrence: None)
  Receive Date: 20100618
  Receipt Date: 20100217
  Transmission Date: 20101027
  Serious: Yes (Other)
  Sender: FDA-Public Use
  Company Number: US-ASTRAZENECA-2008UW27603

PATIENT
  Age: 15186 Day
  Sex: Female
  Weight: 90.7 kg

DRUGS (12)
  1. SEROQUEL [Suspect]
     Indication: INSOMNIA
     Dosage: 100 MG AT BEDTIME, 25 MG EVERY NIGHT AT BEDTIME,
     Route: 048
     Dates: start: 20040112
  2. SEROQUEL [Suspect]
     Indication: DEPRESSION
     Dosage: 100 MG AT BEDTIME, 25 MG EVERY NIGHT AT BEDTIME,
     Route: 048
     Dates: start: 20040112
  3. SEROQUEL [Suspect]
     Route: 048
     Dates: start: 20040301, end: 20090108
  4. SEROQUEL [Suspect]
     Route: 048
     Dates: start: 20040301, end: 20090108
  5. PAXIL CR [Concomitant]
     Dates: start: 20010101
  6. PAXIL CR [Concomitant]
     Dosage: 30 MG AT BEDTIME, 37.5 MG AT BEDTIME, 25 MG QD
     Route: 048
     Dates: start: 20020712
  7. OXYCODONE AND ACETAMINOPHEN [Concomitant]
     Dosage: FOUR TIMES A DAY AS NNEDED
     Dates: start: 20020718
  8. ALPRAZOLAM [Concomitant]
     Indication: PAIN
     Dosage: 0.25 MG 3 TIMES A DAY AS NEEDED, 0.25 MG 2 TIMES A DAY
     Dates: start: 20030925
  9. ALPRAZOLAM [Concomitant]
     Indication: ANXIETY
     Dosage: 0.25 MG 3 TIMES A DAY AS NEEDED, 0.25 MG 2 TIMES A DAY
     Dates: start: 20030925
  10. ADVAIR DISKUS EA [Concomitant]
     Dosage: 250/50 1 PUFF EVERY 12 HOURS
     Route: 055
     Dates: start: 20040108
  11. PROMETHAZINE W/COD [Concomitant]
     Dosage: 1-2 TEASPOONFULS EVERY 4-6 HOURS
     Dates: start: 20040108
  12. BUPROPION HCL [Concomitant]
     Dates: start: 20050111

REACTIONS (2)
  - TYPE 2 DIABETES MELLITUS [None]
  - UTERINE DISORDER [None]
